FAERS Safety Report 17679258 (Version 1)
Quarter: 2020Q2

REPORT INFORMATION
  Report Type: Report from Study
  Country: None (occurrence: US)
  Receive Date: 20200417
  Receipt Date: 20200417
  Transmission Date: 20200714
  Serious: Yes (Hospitalization)
  Sender: FDA-Public Use
  Company Number: US-ABBVIE-18K-163-3112285-00

PATIENT
  Age: 66 Year
  Sex: Female

DRUGS (4)
  1. IMBRUVICA [Suspect]
     Active Substance: IBRUTINIB
     Dosage: 280 MG, QD
     Route: 048
     Dates: start: 20190201
  2. IMBRUVICA [Suspect]
     Active Substance: IBRUTINIB
     Dosage: 280 MG, QD
     Route: 048
     Dates: start: 20180327
  3. IMBRUVICA [Suspect]
     Active Substance: IBRUTINIB
     Dosage: 280 MG, QD
     Route: 048
     Dates: start: 20181010
  4. IMBRUVICA [Suspect]
     Active Substance: IBRUTINIB
     Indication: CHRONIC LYMPHOCYTIC LEUKAEMIA
     Dosage: 280 MG, QD
     Route: 048
     Dates: start: 20180717

REACTIONS (9)
  - Rash macular [Unknown]
  - Mammogram [Unknown]
  - Arthralgia [Not Recovered/Not Resolved]
  - Cheilitis [Unknown]
  - Musculoskeletal pain [Unknown]
  - Dehydration [Recovered/Resolved]
  - Syncope [Recovered/Resolved]
  - Hyperhidrosis [Unknown]
  - Chapped lips [Unknown]

NARRATIVE: CASE EVENT DATE: 2018
